FAERS Safety Report 8215890-4 (Version None)
Quarter: 2012Q1

REPORT INFORMATION
  Report Type: 
  Country: None (occurrence: None)
  Receive Date: 20120316
  Receipt Date: 20120314
  Transmission Date: 20120608
  Serious: Yes (Death, Hospitalization)
  Sender: FDA-Public Use
  Company Number: AN-B.I. PHARMACEUTICALS,INC./RIDGEFIELD-2012-CN-00575CN

PATIENT
  Sex: Male

DRUGS (4)
  1. CORDARONE [Concomitant]
     Indication: ATRIAL FLUTTER
     Dosage: 1 IN 1 DAY
     Route: 048
  2. PRADAXA [Suspect]
     Indication: ATRIAL FIBRILLATION
     Dates: start: 20110101
  3. SIMVASTATIN [Concomitant]
     Indication: DYSLIPIDAEMIA
     Dosage: 1 IN 1 DAY
     Route: 048
  4. METFORMIN HCL [Concomitant]
     Indication: TYPE 2 DIABETES MELLITUS
     Dosage: 1 IN 1 DAY
     Route: 048

REACTIONS (4)
  - ARTERIAL THROMBOSIS LIMB [None]
  - CYANOSIS [None]
  - CARDIAC FAILURE [None]
  - BACK PAIN [None]
